FAERS Safety Report 7906848-0 (Version None)
Quarter: 2011Q4

REPORT INFORMATION
  Report Type: 
  Country: None (occurrence: None)
  Receive Date: 20111109
  Receipt Date: 20111109
  Transmission Date: 20120403
  Serious: Yes (Hospitalization)
  Sender: FDA-Public Use
  Company Number: None

PATIENT
  Age: 17 Year
  Sex: Female
  Weight: 55 kg

DRUGS (2)
  1. ZYPREXA [Concomitant]
  2. CLOZAPINE [Suspect]
     Indication: PSYCHOTIC DISORDER
     Dosage: 100MG, 150MG, 200MG THEN 300MG; QHS
     Route: 048
     Dates: start: 20110921, end: 20111016

REACTIONS (3)
  - ANAEMIA [None]
  - NEUTROPENIA [None]
  - LEUKOPENIA [None]
